FAERS Safety Report 15567572 (Version 1)
Quarter: 2018Q4

REPORT INFORMATION
  Report Type: Spontaneous
  Country: US (occurrence: US)
  Receive Date: 20181030
  Receipt Date: 20181030
  Transmission Date: 20190205
  Serious: No
  Sender: FDA-Public Use
  Company Number: US-SHIRE-US201842195

PATIENT
  Sex: Female

DRUGS (1)
  1. XIIDRA [Suspect]
     Active Substance: LIFITEGRAST
     Indication: DRY EYE
     Dosage: 1 GTT, 2X/DAY:BID
     Route: 047

REACTIONS (6)
  - Instillation site pain [Recovered/Resolved]
  - Dysgeusia [Recovered/Resolved]
  - Conjunctivitis [Recovering/Resolving]
  - Abnormal sensation in eye [Recovering/Resolving]
  - Instillation site pruritus [Recovering/Resolving]
  - Eye discharge [Unknown]
